FAERS Safety Report 22001314 (Version 2)
Quarter: 2023Q1

REPORT INFORMATION
  Report Type: Spontaneous
  Country: GR (occurrence: GR)
  Receive Date: 20230216
  Receipt Date: 20230228
  Transmission Date: 20230417
  Serious: Yes (Death, Other)
  Sender: FDA-Public Use
  Company Number: GR-GILEAD-2023-0617004

PATIENT
  Age: 60 Year
  Sex: Male
  Weight: 102 kg

DRUGS (1)
  1. TECARTUS [Suspect]
     Active Substance: BREXUCABTAGENE AUTOLEUCEL
     Indication: Mantle cell lymphoma
     Dosage: UNK (START AND STOP DATE 29-AUG-2022)
     Route: 042

REACTIONS (2)
  - Cytokine release syndrome [Fatal]
  - Multiple organ dysfunction syndrome [Fatal]

NARRATIVE: CASE EVENT DATE: 20220101
